FAERS Safety Report 9154012 (Version 1)
Quarter: 2013Q1

REPORT INFORMATION
  Report Type: Spontaneous
  Country: US (occurrence: None)
  Receive Date: 20130306
  Receipt Date: 20130306
  Transmission Date: 20140127
  Serious: No
  Sender: FDA-Public Use
  Company Number: None

PATIENT
  Sex: Male
  Weight: 64.86 kg

DRUGS (2)
  1. DIVALPROEX SODIUM [Suspect]
     Route: 048
     Dates: start: 2009, end: 2013
  2. LAMOTRIGINE [Suspect]
     Route: 048

REACTIONS (1)
  - Convulsion [None]
